FAERS Safety Report 6589683-8 (Version None)
Quarter: 2010Q1

REPORT INFORMATION
  Report Type: 
  Country: None (occurrence: None)
  Receive Date: 20100219
  Receipt Date: 20100210
  Transmission Date: 20100710
  Serious: Yes (Hospitalization)
  Sender: FDA-Public Use
  Company Number: US-BIOGENIDEC-2010BI004757

PATIENT
  Age: 64 Year
  Sex: Female
  Weight: 78 kg

DRUGS (9)
  1. TYSABRI [Suspect]
     Indication: MULTIPLE SCLEROSIS
     Route: 042
     Dates: start: 20071102
  2. FERROUS SULFATE TAB [Concomitant]
     Route: 048
  3. PROZAC [Concomitant]
     Route: 048
  4. LISINOPRIL [Concomitant]
     Route: 048
  5. BUSPAR [Concomitant]
     Route: 048
  6. DESYREL [Concomitant]
     Route: 048
  7. PROTONIX [Concomitant]
     Route: 048
  8. PEPCID [Concomitant]
     Route: 048
  9. PROVENTIL [Concomitant]
     Route: 055

REACTIONS (1)
  - OSTEOARTHRITIS [None]
